FAERS Safety Report 15645220 (Version 3)
Quarter: 2019Q1

REPORT INFORMATION
  Report Type: Spontaneous
  Country: US (occurrence: US)
  Receive Date: 20181121
  Receipt Date: 20190130
  Transmission Date: 20190417
  Serious: Yes (Hospitalization, Other)
  Sender: FDA-Public Use
  Company Number: US-LUNDBECK-DKLU2026425

PATIENT
  Age: 1 Year
  Sex: Male
  Weight: 17 kg

DRUGS (23)
  1. NEURONTIN [Concomitant]
     Active Substance: GABAPENTIN
     Indication: PRODUCT USED FOR UNKNOWN INDICATION
     Dosage: 250 MG/5 ML
     Route: 048
  2. MOTRIN [Concomitant]
     Active Substance: IBUPROFEN
     Indication: PAIN
     Dosage: 100 MG/5 ML
     Route: 048
  3. SIMETHICONE (DIMETHICONE) [Concomitant]
     Active Substance: DIMETHICONE
     Indication: CRYING
     Dosage: 40 MG/0.6 ML
     Route: 048
  4. SABRIL [Suspect]
     Active Substance: VIGABATRIN
     Indication: EPILEPSY
     Route: 048
     Dates: start: 20170114
  5. NEURONTIN [Concomitant]
     Active Substance: GABAPENTIN
     Dosage: 250 MG/5 ML
     Route: 048
  6. ZOFRAN [Concomitant]
     Active Substance: ONDANSETRON HYDROCHLORIDE
     Indication: NAUSEA
     Dosage: 4 MG/5 ML
     Route: 048
  7. LUBRIFRESH PM [Concomitant]
     Indication: PRODUCT USED FOR UNKNOWN INDICATION
     Dosage: PLACE SMALL AMOUNT IN RIGHT EYE AS DIRECTED
     Route: 047
  8. SABRIL [Suspect]
     Active Substance: VIGABATRIN
     Indication: STATUS EPILEPTICUS
  9. OMEPRAZOLE. [Concomitant]
     Active Substance: OMEPRAZOLE
     Indication: PRODUCT USED FOR UNKNOWN INDICATION
     Dosage: 2 MG/1 ML
     Route: 048
  10. BACLOFEN. [Concomitant]
     Active Substance: BACLOFEN
     Indication: PRODUCT USED FOR UNKNOWN INDICATION
     Dosage: 10 MG/1 ML
     Route: 048
  11. POLY-VI-SOL-WITH IRON [Concomitant]
     Indication: PRODUCT USED FOR UNKNOWN INDICATION
     Route: 048
  12. MYCOSTATIN [Concomitant]
     Active Substance: NYSTATIN
     Indication: RASH
     Dosage: 100,000 UNITS/GRAM
     Route: 061
  13. SODIUM CHLORIDE. [Concomitant]
     Active Substance: SODIUM CHLORIDE
     Indication: RESPIRATORY TRACT CONGESTION
     Route: 055
  14. HYDROCORTISONE. [Concomitant]
     Active Substance: HYDROCORTISONE
     Indication: PRODUCT USED FOR UNKNOWN INDICATION
     Route: 061
  15. VERSED [Concomitant]
     Active Substance: MIDAZOLAM HYDROCHLORIDE
     Indication: SEIZURE
     Dosage: SEIZURE LASTING MORE THAN 5 MINUTES OR 3 SEIZURES IN 30 MINUTES
     Route: 002
  16. MIRALAX [Concomitant]
     Active Substance: POLYETHYLENE GLYCOL 3350
     Indication: CONSTIPATION
     Dosage: 17 GRAMS/DOSE; MIX 1/2 CAPFUL (8.5 GRAMS) IN 4 TO 8 OUNCES OF CLEAR LIQUIDS OR FORMULA AND GIVE THRO
     Route: 048
  17. ILOTYCIN [Concomitant]
     Active Substance: ERYTHROMYCIN
     Indication: EYE DISCHARGE
  18. TRILEPTAL [Concomitant]
     Active Substance: OXCARBAZEPINE
     Indication: PRODUCT USED FOR UNKNOWN INDICATION
     Dosage: 300 MG/5 ML
     Route: 048
  19. AQUAPHOR [Concomitant]
     Active Substance: PETROLATUM
     Indication: DERMATITIS DIAPER
     Route: 061
  20. ILOTYCIN [Concomitant]
     Active Substance: ERYTHROMYCIN
     Indication: DRY EYE
     Dosage: 5 MG/GRRAM; 1 APPLICATION 3 TIMES DAILY
     Route: 047
  21. NORCO [Concomitant]
     Active Substance: ACETAMINOPHEN\HYDROCODONE BITARTRATE
     Indication: PRODUCT USED FOR UNKNOWN INDICATION
     Dosage: 2.5-108 MG/5ML
     Route: 048
  22. FLORASTOR [Concomitant]
     Active Substance: SACCHAROMYCES CEREVISIAE
     Indication: PRODUCT USED FOR UNKNOWN INDICATION
     Route: 048
  23. ELAVIL [Concomitant]
     Active Substance: AMITRIPTYLINE HYDROCHLORIDE
     Indication: PRODUCT USED FOR UNKNOWN INDICATION
     Dosage: DISSOLVE 1 TABLET WITH 10 ML OF WATER THEN GIVE 0.3 ML (0.3 MG) OF DISSOLVED SOLUTION THROUGH FEEDIN
     Route: 048

REACTIONS (8)
  - Respiratory distress [Recovered/Resolved]
  - Influenza [Recovered/Resolved]
  - Bronchiolitis [Unknown]
  - Rhinovirus infection [Recovered/Resolved]
  - Pneumonia aspiration [Recovered/Resolved]
  - Enterovirus infection [Recovered/Resolved]
  - Urinary tract infection [Recovered/Resolved]
  - Agitation [Recovered/Resolved]

NARRATIVE: CASE EVENT DATE: 201702
